FAERS Safety Report 13314574 (Version 1)
Quarter: 2017Q1

REPORT INFORMATION
  Report Type: Report from Study
  Country: VE (occurrence: VE)
  Receive Date: 20170309
  Receipt Date: 20170309
  Transmission Date: 20170428
  Serious: Yes (Hospitalization, Other)
  Sender: FDA-Public Use
  Company Number: PHHY2016VE109331

PATIENT
  Sex: Female

DRUGS (4)
  1. SANDOSTATIN LAR DEPOT [Suspect]
     Active Substance: OCTREOTIDE ACETATE
     Indication: PANCREATIC CARCINOMA METASTATIC
     Dosage: UNK UNK, QMO
     Route: 030
     Dates: start: 20100101, end: 201610
  2. HITOP [Concomitant]
     Indication: PRODUCT USED FOR UNKNOWN INDICATION
     Route: 065
  3. SANDOSTATIN LAR DEPOT [Suspect]
     Active Substance: OCTREOTIDE ACETATE
     Indication: GASTROENTEROPANCREATIC NEUROENDOCRINE TUMOUR DISEASE
     Dosage: 20 MG, EVERY 3 OR 4 MONTHS
     Route: 030
  4. AFINITOR [Suspect]
     Active Substance: EVEROLIMUS
     Indication: PANCREATIC NEUROENDOCRINE TUMOUR
     Dosage: 10 MG, EVERY DAY EXCEPT FOR SUNDAYS
     Route: 048
     Dates: start: 20161001

REACTIONS (12)
  - Gastritis [Unknown]
  - Headache [Unknown]
  - Ascites [Unknown]
  - Hyperglycaemia [Unknown]
  - Blood cholesterol increased [Unknown]
  - Alopecia [Unknown]
  - Duodenal ulcer [Unknown]
  - Nausea [Unknown]
  - Blood triglycerides abnormal [Unknown]
  - Decreased appetite [Unknown]
  - Product use issue [Unknown]
  - Haemoglobin decreased [Unknown]
